FAERS Safety Report 5956753-4 (Version None)
Quarter: 2008Q4

REPORT INFORMATION
  Report Type: 
  Country: None (occurrence: None)
  Receive Date: 20081118
  Receipt Date: 20081104
  Transmission Date: 20090506
  Serious: Yes (Hospitalization)
  Sender: FDA-Public Use
  Company Number: IT-ASTRAZENECA-2008SE05117

PATIENT

DRUGS (3)
  1. RISPERIDONE [Suspect]
     Indication: SCHIZOPHRENIA
     Route: 048
     Dates: start: 20081021, end: 20081021
  2. RISPERIDONE [Suspect]
     Route: 048
     Dates: start: 20081022, end: 20081022
  3. RISPERIDONE [Suspect]
     Route: 048
     Dates: start: 20081023, end: 20081023

REACTIONS (1)
  - DELUSION [None]
